FAERS Safety Report 8834147 (Version 2)
Quarter: 2014Q1

REPORT INFORMATION
  Report Type: Report from Study
  Country: TN (occurrence: TN)
  Receive Date: 20121010
  Receipt Date: 20140219
  Transmission Date: 20141002
  Serious: Yes (Other)
  Sender: FDA-Public Use
  Company Number: PHHY2012TN089119

PATIENT
  Age: 16 Year
  Sex: Male

DRUGS (3)
  1. EXJADE [Suspect]
     Indication: THALASSAEMIA BETA
     Dosage: 1000 MG, ONCE DAILY
     Route: 048
     Dates: start: 20110527
  2. EXJADE [Suspect]
     Dosage: 1250 MG, ONCE DAILY
     Route: 048
  3. EXJADE [Suspect]
     Dosage: 1500 MG, DAILY
     Route: 048

REACTIONS (2)
  - Growth retardation [Unknown]
  - Iron overload [Recovered/Resolved]
